FAERS Safety Report 5287763-0 (Version None)
Quarter: 2007Q2

REPORT INFORMATION
  Report Type: 
  Country: None (occurrence: None)
  Receive Date: 20070405
  Receipt Date: 20070330
  Transmission Date: 20071010
  Serious: Yes (Life-Threatening)
  Sender: FDA-Public Use
  Company Number: US-BAXTER-2007BH003257

PATIENT
  Age: 41 Year
  Sex: Male

DRUGS (1)
  1. OSMITROL INJECTION IN VIAFLEX PLASTIC CONTAINER [Suspect]
     Indication: INTRA-CEREBRAL ANEURYSM OPERATION
     Route: 065

REACTIONS (7)
  - AMNESIA [None]
  - BLOOD PH DECREASED [None]
  - BLOOD PH INCREASED [None]
  - CARDIAC ARREST [None]
  - HAEMOLYSIS [None]
  - HYPERKALAEMIA [None]
  - VENTRICULAR FIBRILLATION [None]
